FAERS Safety Report 4487763-4 (Version None)
Quarter: 2004Q4

REPORT INFORMATION
  Report Type: 
  Country: None (occurrence: None)
  Receive Date: 20041028
  Receipt Date: 20040712
  Transmission Date: 20050328
  Serious: Yes (Hospitalization)
  Sender: FDA-Public Use
  Company Number: 200412686FR

PATIENT
  Age: 34 Year
  Sex: Male
  Weight: 110 kg

DRUGS (2)
  1. KETEK [Suspect]
     Indication: BRONCHITIS
     Dates: start: 20040629, end: 20040705
  2. SOLUPRED [Concomitant]
     Route: 048
     Dates: start: 20040629

REACTIONS (9)
  - ABDOMINAL PAIN [None]
  - APHTHOUS STOMATITIS [None]
  - BLOOD IMMUNOGLOBULIN G INCREASED [None]
  - HAEMATURIA [None]
  - HEPATIC PAIN [None]
  - PURPURA [None]
  - RED BLOOD CELL COUNT INCREASED [None]
  - THROMBOCYTOPENIA [None]
  - VIRAL INFECTION [None]
